FAERS Safety Report 11553420 (Version 2)
Quarter: 2015Q4

REPORT INFORMATION
  Report Type: Spontaneous
  Country: US (occurrence: US)
  Receive Date: 20150925
  Receipt Date: 20151006
  Transmission Date: 20160304
  Serious: Yes (Hospitalization, Other)
  Sender: FDA-Public Use
  Company Number: US-UCBSA-2015029803

PATIENT
  Age: 31 Year
  Sex: Female
  Weight: 58 kg

DRUGS (3)
  1. PREDNISONE. [Concomitant]
     Active Substance: PREDNISONE
     Indication: CROHN^S DISEASE
     Dosage: DAILY (STARTED FROM LONG TIME)
     Route: 048
  2. CIMZIA [Suspect]
     Active Substance: CERTOLIZUMAB PEGOL
     Indication: CROHN^S DISEASE
     Dosage: 400 MG, EV 4 WEEKS (EXPIRY DATE: OCT-2017)
     Route: 058
     Dates: start: 201507, end: 20150804
  3. OXYCODONE [Concomitant]
     Active Substance: OXYCODONE
     Indication: ABDOMINAL PAIN
     Dosage: 7 PILLS A DAY ON AVERAGE PER PATIENT (STARTED BEFORE START DATE OF CIMZIA)
     Route: 048

REACTIONS (6)
  - Nasopharyngitis [Not Recovered/Not Resolved]
  - Anal fistula [Unknown]
  - Crohn^s disease [Not Recovered/Not Resolved]
  - Nodule [Not Recovered/Not Resolved]
  - Abscess [Not Recovered/Not Resolved]
  - Herpes zoster [Recovered/Resolved]

NARRATIVE: CASE EVENT DATE: 201507
